FAERS Safety Report 8818213 (Version 2)
Quarter: 2013Q1

REPORT INFORMATION
  Report Type: Spontaneous
  Country: US (occurrence: US)
  Receive Date: 20121001
  Receipt Date: 20130325
  Transmission Date: 20140127
  Serious: No
  Sender: FDA-Public Use
  Company Number: US-PFIZER INC-2012240839

PATIENT
  Age: 68 Year
  Sex: Male
  Weight: 80 kg

DRUGS (5)
  1. LYRICA [Suspect]
     Indication: FIBROMYALGIA
     Dosage: 150 MG, 2X/DAY
     Route: 048
  2. LYRICA [Suspect]
     Dosage: 200 MG, 2X/DAY
     Route: 048
     Dates: start: 2010, end: 201303
  3. VICODIN [Suspect]
     Indication: FIBROMYALGIA
     Dosage: ^500 MG^, 2X/DAY
  4. PLAVIX [Concomitant]
     Dosage: UNK
  5. BABY ASPIRIN [Concomitant]
     Dosage: 81 MG, UNK

REACTIONS (5)
  - Drug ineffective [Unknown]
  - Fibromyalgia [Unknown]
  - Pyrexia [Unknown]
  - Stress [Unknown]
  - Pain [Not Recovered/Not Resolved]
